FAERS Safety Report 7337470-5 (Version None)
Quarter: 2011Q1

REPORT INFORMATION
  Report Type: 
  Country: None (occurrence: None)
  Receive Date: 20110308
  Receipt Date: 20110304
  Transmission Date: 20110831
  Serious: Yes (Other)
  Sender: FDA-Public Use
  Company Number: CA-BRISTOL-MYERS SQUIBB COMPANY-15575244

PATIENT
  Age: 23 Year
  Sex: Female

DRUGS (2)
  1. CISPLATIN [Suspect]
     Indication: OVARIAN CANCER
     Dosage: REDUCED TO 30MG/M2
  2. ETOPOSIDE [Suspect]
     Indication: OVARIAN CANCER

REACTIONS (2)
  - PERIPHERAL SENSORIMOTOR NEUROPATHY [None]
  - RENAL IMPAIRMENT [None]
